FAERS Safety Report 5385725-6 (Version None)
Quarter: 2007Q3

REPORT INFORMATION
  Report Type: 
  Country: None (occurrence: None)
  Receive Date: 20070712
  Receipt Date: 20070703
  Transmission Date: 20080115
  Serious: Yes (Hospitalization, Other)
  Sender: FDA-Public Use
  Company Number: JP-PFIZER INC-2007041857

PATIENT
  Age: 77 Year
  Sex: Female

DRUGS (2)
  1. NORVASC [Suspect]
     Indication: HYPERTENSION
     Dosage: DAILY DOSE:5MG-FREQ:DAILY
     Route: 048
  2. ATENOLOL [Suspect]
     Indication: HYPERTENSION
     Dosage: DAILY DOSE:25MG-FREQ:DAILY
     Route: 048
     Dates: start: 20031101, end: 20070509

REACTIONS (2)
  - BRADYCARDIA [None]
  - LOSS OF CONSCIOUSNESS [None]
